FAERS Safety Report 14201998 (Version 1)
Quarter: 2017Q4

REPORT INFORMATION
  Report Type: Spontaneous
  Country: PL (occurrence: PL)
  Receive Date: 20171117
  Receipt Date: 20171117
  Transmission Date: 20180321
  Serious: Yes (Hospitalization)
  Sender: FDA-Public Use
  Company Number: PL-IMPAX LABORATORIES, INC-2017-IPXL-03183

PATIENT
  Age: 13 Year
  Sex: Female

DRUGS (2)
  1. LAMOTRIGINE ODT [Suspect]
     Active Substance: LAMOTRIGINE
     Indication: EPILEPSY
     Dosage: UNK
     Route: 065
  2. INSULIN [Concomitant]
     Active Substance: INSULIN NOS
     Indication: TYPE 1 DIABETES MELLITUS
     Dosage: 0.6-0.7 UNITS/KG, DAILY
     Route: 065

REACTIONS (6)
  - Blindness transient [Recovered/Resolved]
  - Inappropriate antidiuretic hormone secretion [Recovered/Resolved]
  - Diabetic ketoacidosis [Recovered/Resolved]
  - Peripheral vascular disorder [Recovered/Resolved]
  - Muscular weakness [Recovered/Resolved]
  - Hyperreflexia [Recovered/Resolved]
